FAERS Safety Report 25183544 (Version 1)
Quarter: 2025Q2

REPORT INFORMATION
  Report Type: Spontaneous
  Country: US (occurrence: None)
  Receive Date: 20250409
  Receipt Date: 20250409
  Transmission Date: 20250717
  Serious: No
  Sender: FDA-CTU
  Company Number: None

PATIENT
  Age: 70 Year
  Sex: Male

DRUGS (1)
  1. ERIVEDGE [Suspect]
     Active Substance: VISMODEGIB
     Indication: Basal cell carcinoma
     Dosage: 150 MG DAILY ORAL
     Route: 048
     Dates: start: 202411, end: 20250404

REACTIONS (3)
  - Disease progression [None]
  - Basal cell carcinoma [None]
  - Therapy cessation [None]

NARRATIVE: CASE EVENT DATE: 20250404
